FAERS Safety Report 18542841 (Version 1)
Quarter: 2020Q4

REPORT INFORMATION
  Report Type: Report from Study
  Country: US (occurrence: US)
  Receive Date: 20201124
  Receipt Date: 20201124
  Transmission Date: 20210114
  Serious: Yes (Other)
  Sender: FDA-Public Use
  Company Number: US-GILEAD-2020-0505631

PATIENT
  Age: 61 Year
  Sex: Male

DRUGS (7)
  1. AXICABTAGENE CILOLEUCEL [Suspect]
     Active Substance: AXICABTAGENE CILOLEUCEL
     Indication: DIFFUSE LARGE B-CELL LYMPHOMA
     Route: 065
  2. CARBOPLATIN. [Concomitant]
     Active Substance: CARBOPLATIN
  3. ETOPOSIDE. [Concomitant]
     Active Substance: ETOPOSIDE
  4. POLATUZUMAB VEDOTIN. [Concomitant]
     Active Substance: POLATUZUMAB VEDOTIN
  5. RITUXIMAB. [Concomitant]
     Active Substance: RITUXIMAB
  6. BENDAMUSTINE [Concomitant]
     Active Substance: BENDAMUSTINE
  7. IFOSFAMIDE. [Concomitant]
     Active Substance: IFOSFAMIDE

REACTIONS (1)
  - Diffuse large B-cell lymphoma [Unknown]
